FAERS Safety Report 10422124 (Version 2)
Quarter: 2015Q3

REPORT INFORMATION
  Report Type: Spontaneous
  Country: US (occurrence: US)
  Receive Date: 20140901
  Receipt Date: 20150827
  Transmission Date: 20151125
  Serious: No
  Sender: FDA-Public Use
  Company Number: US-SA-2014SA060052

PATIENT
  Age: 85 Year
  Sex: Female

DRUGS (19)
  1. VITAMIN D3 [Concomitant]
     Active Substance: CHOLECALCIFEROL
     Dosage: 2000 IU?1 CAPLET
  2. AYR SALINE NASAL DROPS [Concomitant]
     Active Substance: SODIUM CHLORIDE
     Dosage: UP TO 4 TIMES A DAY)
  3. AVAPRO [Suspect]
     Active Substance: IRBESARTAN
     Indication: HYPERTENSION
     Route: 065
  4. RISPERIDONE. [Suspect]
     Active Substance: RISPERIDONE
     Indication: PRODUCT USED FOR UNKNOWN INDICATION
     Route: 065
  5. ADVAIR HFA [Concomitant]
     Active Substance: FLUTICASONE PROPIONATE\SALMETEROL XINAFOATE
     Dosage: 250/50 MCG.?1 PUFF?NIGHT
  6. SYNTHROID [Concomitant]
     Active Substance: LEVOTHYROXINE SODIUM
     Dosage: FULL HOUR BEFORE OR AFTER EATING?MORNING?0.175 MCG
  7. ZYRTEC [Concomitant]
     Active Substance: CETIRIZINE HYDROCHLORIDE
     Dosage: 10 MG?NIGHT
  8. TRAMADOL. [Concomitant]
     Active Substance: TRAMADOL
  9. AVAPRO [Suspect]
     Active Substance: IRBESARTAN
     Indication: BLOOD GLUCOSE
     Route: 065
  10. ADVAIR HFA [Concomitant]
     Active Substance: FLUTICASONE PROPIONATE\SALMETEROL XINAFOATE
     Dosage: 250/50 MCG.?1 PUFF?MORNING
  11. ALBUTEROL. [Concomitant]
     Active Substance: ALBUTEROL
     Dosage: 25X3 ML VIA NEBULIZER,UP TO EVERY 4 HRS
  12. BACTRIM [Concomitant]
     Active Substance: SULFAMETHOXAZOLE\TRIMETHOPRIM
     Dosage: 400-80 MG.?MORNING
  13. ASPIRIN. [Concomitant]
     Active Substance: ASPIRIN
     Dosage: 81 MG?NIGHT
  14. TYLENOL [Concomitant]
     Active Substance: ACETAMINOPHEN
     Dosage: 500 MG
  15. MELATONIN [Concomitant]
     Active Substance: MELATONIN
     Dosage: 6 MG?NIGHT
  16. PROAIR HFA [Concomitant]
     Active Substance: ALBUTEROL SULFATE
     Dosage: 90 MCG. PER ACTUATION
     Route: 055
  17. ABILIFY [Concomitant]
     Active Substance: ARIPIPRAZOLE
     Dosage: 5 MG?MORNING
  18. EQUATE [Concomitant]
     Active Substance: UNSPECIFIED INGREDIENT
  19. AMLODIPINE [Concomitant]
     Active Substance: AMLODIPINE BESYLATE
     Dosage: 2.5 MG?NIGHT

REACTIONS (3)
  - Anxiety [Recovered/Resolved]
  - Hypersensitivity [Recovered/Resolved]
  - Depression [Recovered/Resolved]
